FAERS Safety Report 6121726-8 (Version None)
Quarter: 2009Q1

REPORT INFORMATION
  Report Type: 
  Country: None (occurrence: None)
  Receive Date: 20090317
  Receipt Date: 20090305
  Transmission Date: 20090719
  Serious: Yes (Life-Threatening, Hospitalization, Other)
  Sender: FDA-Public Use
  Company Number: US-PFIZER INC-2008090211

PATIENT
  Age: 50 Year
  Sex: Female

DRUGS (14)
  1. GEODON [Suspect]
  2. LITHIUM CARBONATE [Suspect]
  3. PROZAC [Suspect]
     Indication: SCHIZOPHRENIA
  4. WELLBUTRIN XL [Suspect]
     Dosage: 150 MG, 1X/DAY
     Route: 048
  5. KLONOPIN [Concomitant]
     Dosage: 0.5 MG, 2X/DAY
     Route: 048
  6. LAMICTAL [Concomitant]
     Dosage: 50 MG AM, 200 MG PM
     Route: 048
  7. AMBIEN [Concomitant]
     Dosage: 12.5 MG, 1X/DAY
     Route: 048
  8. COGENTIN [Concomitant]
     Dosage: 0.5 MG, 2X/DAY AS NEEDED
     Route: 048
  9. PREMARIN [Suspect]
     Dosage: 0.125 MG, 1X/DAY
     Route: 048
  10. LOVASTATIN [Concomitant]
     Dosage: 20 MG, 1X/DAY
     Route: 048
  11. PRINIVIL [Concomitant]
     Dosage: 20 MG, 1X/DAY
     Route: 048
  12. OMEPRAZOLE [Concomitant]
     Dosage: 20 MG, 1X/DAY
     Route: 048
  13. LORTAB [Concomitant]
     Dosage: UNK
     Route: 048
  14. ULTRAM [Concomitant]

REACTIONS (26)
  - ACTIVATED PARTIAL THROMBOPLASTIN TIME PROLONGED [None]
  - AMPHETAMINES POSITIVE [None]
  - ANXIETY [None]
  - ATAXIA [None]
  - BRONCHITIS [None]
  - CARDIAC ARREST [None]
  - CONVULSION [None]
  - DEPRESSION [None]
  - ELECTROCARDIOGRAM QT PROLONGED [None]
  - ENCEPHALOPATHY [None]
  - HALLUCINATION, AUDITORY [None]
  - HEART RATE DECREASED [None]
  - HYPOGLYCAEMIA [None]
  - LEUKOCYTOSIS [None]
  - LIVER FUNCTION TEST ABNORMAL [None]
  - MENTAL STATUS CHANGES [None]
  - MIGRAINE [None]
  - MUSCLE SPASMS [None]
  - MYOCARDIAL INFARCTION [None]
  - PARANOIA [None]
  - PNEUMONIA STAPHYLOCOCCAL [None]
  - SUICIDAL IDEATION [None]
  - THROMBOCYTOPENIA [None]
  - TORSADE DE POINTES [None]
  - VENTRICULAR FIBRILLATION [None]
  - VENTRICULAR TACHYCARDIA [None]
